FAERS Safety Report 8919112 (Version 1)
Quarter: 2012Q4

REPORT INFORMATION
  Report Type: 
  Country: US (occurrence: US)
  Receive Date: 20121121
  Receipt Date: 20121121
  Transmission Date: 20130627
  Serious: Yes (Other)
  Sender: FDA-Public Use
  Company Number: US-ASTELLAS-2012US011145

PATIENT
  Age: 62 Year
  Sex: Male

DRUGS (6)
  1. TARCEVA [Suspect]
     Indication: NON-SMALL CELL LUNG CANCER STAGE IV
     Dosage: 150 mg, UID/QD
     Route: 048
     Dates: start: 20120607, end: 20120608
  2. TARCEVA [Suspect]
     Dosage: 25 mg, UID/QD
     Route: 048
     Dates: start: 20120610
  3. TARCEVA [Suspect]
     Dosage: 50 mg, UID/QD
     Route: 048
  4. TARCEVA [Suspect]
     Dosage: 75 mg, UID/QD
     Route: 048
  5. TARCEVA [Suspect]
     Dosage: 100 mg, UID/QD
     Route: 048
  6. TARCEVA [Suspect]
     Dosage: 75 mg, UID/QD
     Route: 048

REACTIONS (8)
  - Drug dose omission [Unknown]
  - Vocal cord paralysis [Unknown]
  - Nausea [Unknown]
  - Abdominal pain [Unknown]
  - Ascites [Unknown]
  - Pruritus [Unknown]
  - Acne [Unknown]
  - Skin disorder [Unknown]
